FAERS Safety Report 21587675 (Version 1)
Quarter: 2022Q4

REPORT INFORMATION
  Report Type: Spontaneous
  Country: CN (occurrence: CN)
  Receive Date: 20221114
  Receipt Date: 20221114
  Transmission Date: 20230112
  Serious: Yes (Other)
  Sender: FDA-Public Use
  Company Number: CN-SUN PHARMACEUTICAL INDUSTRIES LTD-2022R1-363390

PATIENT
  Age: 43 Year
  Sex: Male

DRUGS (9)
  1. DEXAMETHASONE [Suspect]
     Active Substance: DEXAMETHASONE
     Indication: Pain
     Dosage: UNK
     Route: 065
  2. COLCHICINE [Concomitant]
     Active Substance: COLCHICINE
     Indication: Pain
     Dosage: UNK
     Route: 065
  3. DICLOFENAC [Concomitant]
     Active Substance: DICLOFENAC
     Indication: Pain
     Dosage: UNK
     Route: 065
  4. FEBUXOSTAT [Concomitant]
     Active Substance: FEBUXOSTAT
     Indication: Pain
     Dosage: UNK
     Route: 065
  5. FLURBIPROFEN [Concomitant]
     Active Substance: FLURBIPROFEN
     Indication: Pain
     Dosage: UNK
     Route: 065
  6. LEVOFLOXACIN LACTATE [Concomitant]
     Active Substance: LEVOFLOXACIN LACTATE
     Indication: Anti-infective therapy
     Dosage: UNK
     Route: 065
  7. LOSARTAN [Concomitant]
     Active Substance: LOSARTAN
     Indication: Blood pressure management
     Dosage: UNK
     Route: 065
  8. MORPHINE SULFATE [Concomitant]
     Active Substance: MORPHINE SULFATE
     Indication: Pain
     Dosage: UNK
     Route: 065
  9. NIFEDIPINE [Concomitant]
     Active Substance: NIFEDIPINE
     Indication: Blood pressure management
     Dosage: UNK
     Route: 065

REACTIONS (1)
  - Acute kidney injury [Recovering/Resolving]
